FAERS Safety Report 17680289 (Version 1)
Quarter: 2020Q2

REPORT INFORMATION
  Report Type: Report from Study
  Country: BR (occurrence: BR)
  Receive Date: 20200417
  Receipt Date: 20200417
  Transmission Date: 20200714
  Serious: Yes (Other)
  Sender: FDA-Public Use
  Company Number: NVSC2020BR092696

PATIENT
  Age: 93 Year
  Sex: Male
  Weight: 70 kg

DRUGS (5)
  1. CEBRALAT [Concomitant]
     Active Substance: CILOSTAZOL
     Indication: CARDIOVASCULAR DISORDER
     Dosage: 100 MG, QD (MORNING) (STARTED 10 YEARS AGO)
     Route: 065
  2. EXELON [Suspect]
     Active Substance: RIVASTIGMINE TARTRATE
     Indication: DEMENTIA
     Dosage: 1/2 PATCH OF 5 CM, QD (DERMAL ROUTE)
     Route: 065
     Dates: start: 2016
  3. MONOCORDIL [Concomitant]
     Active Substance: ISOSORBIDE MONONITRATE
     Indication: CARDIAC DISORDER
     Dosage: 40 MG, QD (STARTED MANY YEARS AGO)
     Route: 048
  4. ATENOLOL. [Concomitant]
     Active Substance: ATENOLOL
     Indication: CARDIAC DISORDER
     Dosage: 20 MG, QD (STARTED 3 YEARS AGO)
     Route: 048
  5. ACETYLSALICYLIC ACID [Concomitant]
     Active Substance: ASPIRIN
     Indication: THROMBOSIS
     Dosage: 100 MG, QD (6 YEARS AGO)
     Route: 048

REACTIONS (13)
  - Dementia [Not Recovered/Not Resolved]
  - Aggression [Not Recovered/Not Resolved]
  - Sleep disorder [Recovered/Resolved]
  - Wrong technique in product usage process [Unknown]
  - Concomitant disease aggravated [Unknown]
  - Drug ineffective [Not Recovered/Not Resolved]
  - Cardiovascular disorder [Unknown]
  - Carotid artery disease [Unknown]
  - Irritability [Unknown]
  - Memory impairment [Not Recovered/Not Resolved]
  - Abdominal discomfort [Not Recovered/Not Resolved]
  - Glucose tolerance impaired [Recovering/Resolving]
  - Agitation [Not Recovered/Not Resolved]

NARRATIVE: CASE EVENT DATE: 202003
